FAERS Safety Report 20629042 (Version 3)
Quarter: 2022Q2

REPORT INFORMATION
  Report Type: Spontaneous
  Country: FR (occurrence: FR)
  Receive Date: 20220323
  Receipt Date: 20220511
  Transmission Date: 20220721
  Serious: Yes (Hospitalization)
  Sender: FDA-Public Use
  Company Number: FR-LEO Pharma-341684

PATIENT
  Age: 36 Year
  Sex: Male
  Weight: 114 kg

DRUGS (1)
  1. BRODALUMAB [Suspect]
     Active Substance: BRODALUMAB
     Indication: Psoriasis
     Dosage: WEEK 0, 1 AND 2 THEN 210MG EVERY 2 WEEKS
     Route: 058
     Dates: start: 20220103, end: 20220110

REACTIONS (2)
  - Paradoxical drug reaction [Recovered/Resolved]
  - Psoriatic arthropathy [Recovered/Resolved]

NARRATIVE: CASE EVENT DATE: 20220110
